FAERS Safety Report 17260906 (Version 2)
Quarter: 2020Q1

REPORT INFORMATION
  Report Type: Spontaneous
  Country: US (occurrence: US)
  Receive Date: 20200113
  Receipt Date: 20200122
  Transmission Date: 20200409
  Serious: Yes (Hospitalization, Other)
  Sender: FDA-Public Use
  Company Number: US-DRREDDYS-USA/USA/20/0118518

PATIENT
  Age: 62 Year
  Sex: Male

DRUGS (2)
  1. LEVETIRACETAM. [Suspect]
     Active Substance: LEVETIRACETAM
     Indication: INTRACRANIAL MASS
  2. DEXAMETHASONE SODIUM PHOSPHATE INJECTION, 4 MG/ML [Suspect]
     Active Substance: DEXAMETHASONE SODIUM PHOSPHATE
     Indication: INTRACRANIAL MASS

REACTIONS (6)
  - Intracranial mass [Unknown]
  - Abscess soft tissue [Recovering/Resolving]
  - Condition aggravated [Unknown]
  - Leukopenia [Unknown]
  - Pulmonary mass [Unknown]
  - Cerebral aspergillosis [Recovering/Resolving]
